FAERS Safety Report 18256730 (Version 1)
Quarter: 2020Q3

REPORT INFORMATION
  Report Type: Spontaneous
  Country: US (occurrence: US)
  Receive Date: 20200910
  Receipt Date: 20200910
  Transmission Date: 20201103
  Serious: Yes (Hospitalization)
  Sender: FDA-Public Use
  Company Number: None

PATIENT
  Age: 58 Year
  Sex: Male

DRUGS (21)
  1. PANTOPRAZOLE [Concomitant]
     Active Substance: PANTOPRAZOLE
  2. PREDNISONE. [Concomitant]
     Active Substance: PREDNISONE
  3. TRAMADOL HCL [Concomitant]
     Active Substance: TRAMADOL HYDROCHLORIDE
  4. XARELTO [Concomitant]
     Active Substance: RIVAROXABAN
  5. AMLODIPINE [Concomitant]
     Active Substance: AMLODIPINE BESYLATE
  6. BACLOFEN. [Concomitant]
     Active Substance: BACLOFEN
  7. CLOTRIMAZOLE. [Concomitant]
     Active Substance: CLOTRIMAZOLE
  8. GABAPENTIN. [Concomitant]
     Active Substance: GABAPENTIN
  9. PROCHLORPER [Concomitant]
  10. ROSUVASTATIN. [Concomitant]
     Active Substance: ROSUVASTATIN
  11. FAMOTIDINE. [Concomitant]
     Active Substance: FAMOTIDINE
  12. SOD CHLORIDE [Concomitant]
     Active Substance: SODIUM CHLORIDE
  13. EVEROLIMUS 5MG (7 TAB/CARD) [Suspect]
     Active Substance: EVEROLIMUS
     Indication: RENAL CANCER
     Route: 048
     Dates: start: 20200220
  14. DEXAMETHASON [Concomitant]
     Active Substance: DEXAMETHASONE
  15. LEVOTHYROXIN [Concomitant]
     Active Substance: LEVOTHYROXINE
  16. MEGESTROL AC [Concomitant]
  17. A?HYDROCORT [Concomitant]
     Active Substance: HYDROCORTISONE SODIUM SUCCINATE
  18. SYNTHROID [Concomitant]
     Active Substance: LEVOTHYROXINE SODIUM
  19. ATENOLOL. [Concomitant]
     Active Substance: ATENOLOL
  20. DOXYCYCL HYC [Concomitant]
  21. POT CL MICRO [Concomitant]

REACTIONS (2)
  - Therapy interrupted [None]
  - Dehydration [None]

NARRATIVE: CASE EVENT DATE: 20200901
